FAERS Safety Report 5145149-3 (Version None)
Quarter: 2006Q4

REPORT INFORMATION
  Report Type: 
  Country: None (occurrence: None)
  Receive Date: 20061107
  Receipt Date: 20061025
  Transmission Date: 20070319
  Serious: Yes (Hospitalization)
  Sender: FDA-Public Use
  Company Number: FI-ELI_LILLY_AND_COMPANY-FI200610004590

PATIENT
  Age: 69 Year
  Sex: Female

DRUGS (10)
  1. FORTEO [Suspect]
     Indication: OSTEOPOROSIS
     Dosage: 20 UG, DAILY (1/D)
     Route: 058
     Dates: start: 20060601, end: 20060823
  2. METOPROLOL SUCCINATE [Concomitant]
     Indication: HYPERTENSION
     Dosage: 47.5 MG, DAILY (1/D)
     Route: 048
  3. BETASERC                                /NET/ [Concomitant]
     Indication: MENIERE'S DISEASE
     Dosage: 8 MG, 3/D
     Route: 048
  4. PANADOL /NEZ/ [Concomitant]
     Indication: PAIN
     Dosage: 1 G, 3/D
     Route: 048
  5. CALCICHEW-D3 [Concomitant]
     Indication: MINERAL SUPPLEMENTATION
     Dosage: 500 MG, 2/D
     Route: 048
  6. MOVICOL [Concomitant]
     Indication: CONSTIPATION
     Dosage: 1 UNK, DAILY (1/D)
     Route: 048
     Dates: start: 20060701
  7. MIACALCIC /UNK/ [Concomitant]
     Indication: BONE PAIN
     Dosage: 200 U, DAILY (1/D)
     Route: 045
  8. SOMAC [Concomitant]
     Indication: PROPHYLAXIS
     Dosage: 40 MG, 2/D
     Route: 048
  9. ASPIRIN [Concomitant]
     Indication: THROMBOSIS
     Dosage: 50 MG, DAILY (1/D)
     Route: 048
  10. OXYNORM [Concomitant]
     Indication: PAIN
     Dosage: 5 MG, OTHER
     Route: 048
     Dates: start: 20060803, end: 20060920

REACTIONS (1)
  - BACK PAIN [None]
